FAERS Safety Report 6040418-7 (Version None)
Quarter: 2009Q1

REPORT INFORMATION
  Report Type: 
  Country: None (occurrence: None)
  Receive Date: 20090116
  Receipt Date: 20080423
  Transmission Date: 20090719
  Serious: Yes (Hospitalization)
  Sender: FDA-Public Use
  Company Number: US-BRISTOL-MYERS SQUIBB COMPANY-14107049

PATIENT
  Age: 25 Year
  Sex: Male

DRUGS (2)
  1. ABILIFY [Suspect]
     Indication: SCHIZOPHRENIA
     Route: 048
     Dates: start: 20080302, end: 20080304
  2. ATIVAN [Concomitant]
     Dosage: 1 DOSE EACH ON 03MAR AND 03APR
     Route: 048
     Dates: start: 20080303, end: 20080403

REACTIONS (1)
  - HEPATIC ENZYME INCREASED [None]
